FAERS Safety Report 4505721-8 (Version None)
Quarter: 2004Q4

REPORT INFORMATION
  Report Type: 
  Country: None (occurrence: None)
  Receive Date: 20041018
  Receipt Date: 20040824
  Transmission Date: 20050328
  Serious: No
  Sender: FDA-Public Use
  Company Number: 208639

PATIENT
  Age: 30 Year
  Sex: Female
  Weight: 79.4 kg

DRUGS (6)
  1. XOLAIR [Suspect]
     Dosage: 300 MG, 1/MONTH, SUBCUTANEOUS
     Route: 058
     Dates: start: 20040602
  2. OVAR (BECLOMETHASONE DIPROPIONATE) [Concomitant]
  3. ALLEGRA [Concomitant]
  4. SINGULAIR [Concomitant]
  5. VENTOLIN (ALBUTEROL SULFATE, ALBUTEROL) [Concomitant]
  6. PRENATAL VITAMINS NOS (MINERALS NOS, MULTIVITAMINS NOS) [Concomitant]

REACTIONS (2)
  - CONTUSION [None]
  - VASCULITIS [None]
